FAERS Safety Report 9496789 (Version 1)
Quarter: 2013Q3

REPORT INFORMATION
  Report Type: Spontaneous
  Country: SE (occurrence: SE)
  Receive Date: 20130904
  Receipt Date: 20130904
  Transmission Date: 20140515
  Serious: Yes (Death)
  Sender: FDA-Public Use
  Company Number: SE-PFIZER INC-2013254169

PATIENT
  Sex: Female

DRUGS (1)
  1. CYKLOKAPRON [Suspect]
     Indication: GASTRIC HAEMORRHAGE
     Dosage: UNK
     Route: 042

REACTIONS (2)
  - Incorrect drug administration rate [Fatal]
  - Thrombosis [Fatal]
